FAERS Safety Report 20710561 (Version 3)
Quarter: 2022Q2

REPORT INFORMATION
  Report Type: Report from Study
  Country: CA (occurrence: CA)
  Receive Date: 20220414
  Receipt Date: 20220621
  Transmission Date: 20220721
  Serious: Yes (Hospitalization, Other)
  Sender: FDA-Public Use
  Company Number: CA-GLAXOSMITHKLINE-CA2022060225

PATIENT

DRUGS (1)
  1. MEPOLIZUMAB [Suspect]
     Active Substance: MEPOLIZUMAB
     Indication: Asthma
     Dosage: 100 MG, Z (EVERY 4 WEEKS)
     Route: 058
     Dates: start: 20191029

REACTIONS (8)
  - Cardiac failure [Not Recovered/Not Resolved]
  - Pyrexia [Not Recovered/Not Resolved]
  - Myocardial infarction [Unknown]
  - Infection [Recovered/Resolved]
  - Influenza [Unknown]
  - Coronavirus infection [Unknown]
  - Product dose omission issue [Unknown]
  - Inappropriate schedule of product administration [Unknown]

NARRATIVE: CASE EVENT DATE: 20220415
